FAERS Safety Report 7151045-2 (Version None)
Quarter: 2010Q4

REPORT INFORMATION
  Report Type: 
  Country: None (occurrence: None)
  Receive Date: 20101210
  Receipt Date: 20101203
  Transmission Date: 20110411
  Serious: Yes (Other)
  Sender: FDA-Public Use
  Company Number: B0688291A

PATIENT
  Sex: Female

DRUGS (8)
  1. SERETIDE [Suspect]
     Indication: ASTHMA
     Dosage: 1PUFF TWICE PER DAY
     Route: 055
  2. ASMOL [Concomitant]
  3. EPILIM [Concomitant]
  4. ABILIFY [Concomitant]
  5. OMEPRAZOLE [Concomitant]
  6. SERTRALINE [Concomitant]
  7. VALIUM [Concomitant]
  8. ESTELLE [Concomitant]

REACTIONS (2)
  - ASTHMA [None]
  - PRODUCT QUALITY ISSUE [None]
